FAERS Safety Report 7349892-7 (Version None)
Quarter: 2011Q1

REPORT INFORMATION
  Report Type: 
  Country: None (occurrence: None)
  Receive Date: 20110314
  Receipt Date: 20110304
  Transmission Date: 20110831
  Serious: Yes (Hospitalization, Other)
  Sender: FDA-Public Use
  Company Number: JP-ROCHE-754412

PATIENT
  Sex: Female
  Weight: 60 kg

DRUGS (14)
  1. ACTEMRA [Suspect]
     Indication: RHEUMATOID ARTHRITIS
     Route: 041
     Dates: start: 20090319, end: 20090319
  2. ACTONEL [Concomitant]
     Route: 048
     Dates: start: 20091122, end: 20091127
  3. PREDONINE [Concomitant]
     Route: 048
     Dates: start: 20090418, end: 20090515
  4. ACTEMRA [Suspect]
     Route: 041
     Dates: start: 20090710, end: 20090710
  5. ACTEMRA [Suspect]
     Route: 041
     Dates: start: 20090807, end: 20090807
  6. PREDONINE [Concomitant]
     Dosage: FORM:PERORAL AGENT
     Route: 048
     Dates: end: 20090417
  7. ACTEMRA [Suspect]
     Route: 041
     Dates: start: 20090612, end: 20090612
  8. ACTEMRA [Suspect]
     Route: 041
     Dates: start: 20090904, end: 20091127
  9. ENBREL [Suspect]
     Indication: RHEUMATOID ARTHRITIS
     Dosage: DOSAGE IS UNCERTAIN
     Route: 058
  10. PREDONINE [Concomitant]
     Route: 048
     Dates: start: 20090613
  11. ACTEMRA [Suspect]
     Route: 041
     Dates: start: 20090417, end: 20090417
  12. PREDONINE [Concomitant]
     Route: 048
     Dates: start: 20090516, end: 20090612
  13. ACTEMRA [Suspect]
     Route: 041
     Dates: start: 20090515, end: 20090515
  14. ISCOTIN [Concomitant]
     Dosage: FORM: POWDERED MEDICINE
     Route: 048
     Dates: start: 20090301, end: 20091127

REACTIONS (2)
  - INTERSTITIAL LUNG DISEASE [None]
  - DIVERTICULITIS [None]
